FAERS Safety Report 14558086 (Version 1)
Quarter: 2018Q1

REPORT INFORMATION
  Report Type: Spontaneous
  Country: US (occurrence: US)
  Receive Date: 20180213
  Receipt Date: 20180213
  Transmission Date: 20180509
  Serious: Yes (Other)
  Sender: FDA-Public Use
  Company Number: None

PATIENT
  Age: 49 Year
  Sex: Female
  Weight: 56.25 kg

DRUGS (1)
  1. GADAVIST [Suspect]
     Active Substance: GADOBUTROL

REACTIONS (9)
  - Pain [None]
  - Urine odour abnormal [None]
  - Burning sensation [None]
  - Diarrhoea [None]
  - Anorectal discomfort [None]
  - Skin haemorrhage [None]
  - Dysuria [None]
  - Haemorrhage [None]
  - Abnormal faeces [None]

NARRATIVE: CASE EVENT DATE: 20180208
